FAERS Safety Report 16474398 (Version 1)
Quarter: 2019Q2

REPORT INFORMATION
  Report Type: Spontaneous
  Country: BE (occurrence: BE)
  Receive Date: 20190625
  Receipt Date: 20190625
  Transmission Date: 20190711
  Serious: Yes (Death, Hospitalization)
  Sender: FDA-Public Use
  Company Number: BE-CELGENEUS-BEL-20190203478

PATIENT
  Age: 33 Year
  Sex: Female
  Weight: 57 kg

DRUGS (16)
  1. CLEXANE [Concomitant]
     Active Substance: ENOXAPARIN SODIUM
     Dosage: 40 MILLIGRAM
     Route: 058
     Dates: start: 20181023, end: 20190202
  2. PARACETAMOL [Concomitant]
     Active Substance: ACETAMINOPHEN
     Indication: ANALGESIC THERAPY
     Dosage: 1 G/100 ML
     Route: 065
     Dates: start: 20190206, end: 20190208
  3. ABRAXANE [Suspect]
     Active Substance: PACLITAXEL
     Indication: OVARIAN CANCER
     Dosage: 140 MILLIGRAM
     Route: 033
     Dates: start: 20181212, end: 20190111
  4. TRAMADOL. [Concomitant]
     Active Substance: TRAMADOL
     Indication: ANALGESIC THERAPY
     Dosage: 100 MG/2 ML AMP
     Route: 065
     Dates: start: 20190206, end: 20190208
  5. PANTOMED [Concomitant]
     Indication: GASTRIC DISORDER
     Route: 065
     Dates: start: 20190203, end: 20190209
  6. BUSCOPAN [Concomitant]
     Active Substance: BUTYLSCOPOLAMINE BROMIDE
     Indication: PRODUCT USED FOR UNKNOWN INDICATION
     Route: 065
  7. LITICAN [Concomitant]
     Active Substance: ALIZAPRIDE HYDROCHLORIDE
     Dosage: 150 MILLIGRAM
     Route: 048
     Dates: start: 20181023, end: 20190202
  8. ONDANSETRON [Concomitant]
     Active Substance: ONDANSETRON
     Indication: NAUSEA
     Dosage: 2 ML AMPULE
     Route: 065
     Dates: start: 20190206, end: 20190208
  9. PANTOMED [Concomitant]
     Route: 048
     Dates: start: 20181023, end: 20190202
  10. PARACETAMOL [Concomitant]
     Active Substance: ACETAMINOPHEN
     Dosage: 4 GRAM
     Route: 048
     Dates: start: 20181023, end: 20190202
  11. TRAMADOL. [Concomitant]
     Active Substance: TRAMADOL
     Dosage: 200 MILLIGRAM
     Route: 048
     Dates: start: 20181023, end: 20190202
  12. CLEXANE [Concomitant]
     Active Substance: ENOXAPARIN SODIUM
     Indication: ANTICOAGULANT THERAPY
     Route: 065
     Dates: start: 20190203
  13. DICLOFENAC EG RETARD COMP [Concomitant]
     Indication: INFLAMMATION
     Dosage: 150 MILLIGRAM
     Route: 048
     Dates: start: 20181023, end: 20190227
  14. PRIMPERAN [Concomitant]
     Active Substance: METOCLOPRAMIDE HYDROCHLORIDE
     Indication: NAUSEA
     Dosage: 30 MILLIGRAM
     Route: 048
     Dates: start: 20181023, end: 20190202
  15. DEHYDROBENZPERIDOL [Concomitant]
     Active Substance: DROPERIDOL
     Indication: NAUSEA
     Dosage: 2.5 ML AMPULE
     Route: 065
     Dates: start: 20190206, end: 20190207
  16. LITICAN [Concomitant]
     Active Substance: ALIZAPRIDE HYDROCHLORIDE
     Indication: NAUSEA
     Route: 065
     Dates: start: 20190206, end: 20190208

REACTIONS (1)
  - Metastatic gastric cancer [Fatal]

NARRATIVE: CASE EVENT DATE: 20190522
